FAERS Safety Report 21063140 (Version 1)
Quarter: 2022Q3

REPORT INFORMATION
  Report Type: Spontaneous
  Country: IN (occurrence: IN)
  Receive Date: 20220711
  Receipt Date: 20220711
  Transmission Date: 20221027
  Serious: Yes (Other)
  Sender: FDA-Public Use
  Company Number: IN-SUN PHARMACEUTICAL INDUSTRIES LTD-2022R1-343699

PATIENT
  Weight: 2.8 kg

DRUGS (5)
  1. OCTREOTIDE [Suspect]
     Active Substance: OCTREOTIDE
     Indication: Hypoglycaemia
     Dosage: 50 MICROGRAM, TID (SHORT ACTING)
     Route: 064
  2. OCTREOTIDE [Suspect]
     Active Substance: OCTREOTIDE
     Dosage: 150 MICROGRAM (NIGHT TIME DOSE)
     Route: 064
  3. OCTREOTIDE [Suspect]
     Active Substance: OCTREOTIDE
     Dosage: 20 MICROGRAM (LONG ACTING RELEASE)
     Route: 064
  4. CINACALCET [Suspect]
     Active Substance: CINACALCET
     Indication: Hypercalcaemia
     Dosage: 30 MILLIGRAM, OD
     Route: 064
  5. CINACALCET [Suspect]
     Active Substance: CINACALCET
     Dosage: 30 MILLIGRAM, BID
     Route: 064

REACTIONS (2)
  - Hypoglycaemia [Recovered/Resolved]
  - Foetal exposure during pregnancy [Unknown]
